FAERS Safety Report 12310371 (Version 1)
Quarter: 2016Q2

REPORT INFORMATION
  Report Type: Spontaneous
  Country: US (occurrence: US)
  Receive Date: 20160427
  Receipt Date: 20160427
  Transmission Date: 20160815
  Serious: No
  Sender: FDA-Public Use
  Company Number: US-MYLANLABS-2015M1014803

PATIENT
  Sex: Female

DRUGS (1)
  1. LORAZEPAM TABLETS, USP [Suspect]
     Active Substance: LORAZEPAM
     Dosage: 1 MG, QD
     Route: 048

REACTIONS (1)
  - False negative investigation result [Not Recovered/Not Resolved]
